FAERS Safety Report 18097413 (Version 3)
Quarter: 2020Q3

REPORT INFORMATION
  Report Type: Spontaneous
  Country: US (occurrence: US)
  Receive Date: 20200730
  Receipt Date: 20200822
  Transmission Date: 20201103
  Serious: No
  Sender: FDA-Public Use
  Company Number: US-ACTELION-A-NJ2020-206965

PATIENT
  Sex: Female
  Weight: 109.3 kg

DRUGS (5)
  1. UPTRAVI [Suspect]
     Active Substance: SELEXIPAG
     Indication: PULMONARY ARTERIAL HYPERTENSION
     Dosage: 600 MCG
     Route: 048
  2. UPTRAVI [Suspect]
     Active Substance: SELEXIPAG
     Dosage: 400 MCG, BID
     Route: 048
  3. SILDENAFIL CITRATE. [Concomitant]
     Active Substance: SILDENAFIL CITRATE
  4. UPTRAVI [Suspect]
     Active Substance: SELEXIPAG
     Dosage: 800 MCG
     Route: 048
  5. OPSUMIT [Suspect]
     Active Substance: MACITENTAN
     Indication: PULMONARY ARTERIAL HYPERTENSION
     Dosage: 10 MG, QD
     Route: 048

REACTIONS (8)
  - Decreased appetite [Unknown]
  - Cardiac failure congestive [Unknown]
  - Nausea [Not Recovered/Not Resolved]
  - Diarrhoea [Unknown]
  - Migraine [Unknown]
  - Vomiting [Unknown]
  - Heart rate increased [Recovering/Resolving]
  - Headache [Not Recovered/Not Resolved]
